FAERS Safety Report 7051633-8 (Version None)
Quarter: 2010Q4

REPORT INFORMATION
  Report Type: 
  Country: None (occurrence: None)
  Receive Date: 20101018
  Receipt Date: 20101018
  Transmission Date: 20110411
  Serious: Yes (Other)
  Sender: FDA-Public Use
  Company Number: None

PATIENT
  Age: 50 Year
  Sex: Female
  Weight: 95.709 kg

DRUGS (1)
  1. OXYCONTIN [Suspect]
     Indication: FIBROMYALGIA
     Dosage: ONE TID PO
     Route: 048
     Dates: start: 20101013, end: 20101017

REACTIONS (9)
  - DIARRHOEA [None]
  - DIZZINESS [None]
  - DYSPNOEA [None]
  - HEART RATE INCREASED [None]
  - HYPERHIDROSIS [None]
  - NAUSEA [None]
  - PAIN [None]
  - PALPITATIONS [None]
  - PRODUCT FORMULATION ISSUE [None]
